FAERS Safety Report 8299924-7 (Version None)
Quarter: 2012Q2

REPORT INFORMATION
  Report Type: 
  Country: None (occurrence: None)
  Receive Date: 20120420
  Receipt Date: 20120409
  Transmission Date: 20120825
  Serious: No
  Sender: FDA-Public Use
  Company Number: US-BIOGENIDEC-2011BI015690

PATIENT
  Sex: Female

DRUGS (3)
  1. TYSABRI [Suspect]
     Indication: MULTIPLE SCLEROSIS
     Route: 042
     Dates: start: 20110323
  2. TIZANIDINE HCL [Concomitant]
     Indication: MUSCLE SPASMS
     Dates: start: 20110101
  3. CYMBALTA [Concomitant]
     Indication: FIBROMYALGIA
     Dates: start: 20110101

REACTIONS (15)
  - TENDONITIS [None]
  - LACRIMATION DECREASED [None]
  - BALANCE DISORDER [None]
  - LIMB DEFORMITY [None]
  - CENTRAL NERVOUS SYSTEM LESION [None]
  - ASTHENIA [None]
  - TOOTH ABSCESS [None]
  - SENSATION OF HEAVINESS [None]
  - DYSGRAPHIA [None]
  - ABASIA [None]
  - MENTAL DISORDER [None]
  - MULTIPLE SCLEROSIS RELAPSE [None]
  - BURSITIS [None]
  - FALL [None]
  - BURNS SECOND DEGREE [None]
